FAERS Safety Report 4871155-X (Version None)
Quarter: 2005Q4

REPORT INFORMATION
  Report Type: 
  Country: None (occurrence: None)
  Receive Date: 20051229
  Receipt Date: 20051219
  Transmission Date: 20060501
  Serious: Yes (Hospitalization)
  Sender: FDA-Public Use
  Company Number: 2005BI022297

PATIENT
  Age: 36 Year
  Sex: Female
  Weight: 87 kg

DRUGS (4)
  1. AVONEX [Suspect]
     Indication: MULTIPLE SCLEROSIS
     Dosage: 30 UG;QW;IM
     Route: 030
     Dates: start: 20041101
  2. HARMONET [Concomitant]
  3. L-THYROXINE [Concomitant]
  4. SEROXAT [Concomitant]

REACTIONS (3)
  - INFLAMMATION [None]
  - MULTIPLE SCLEROSIS RELAPSE [None]
  - SPINAL CORD DISORDER [None]
